FAERS Safety Report 7810094-9 (Version None)
Quarter: 2011Q4

REPORT INFORMATION
  Report Type: 
  Country: None (occurrence: None)
  Receive Date: 20111012
  Receipt Date: 20111005
  Transmission Date: 20120403
  Serious: Yes (Hospitalization, Other)
  Sender: FDA-Public Use
  Company Number: JP-CEPHALON-2011001807

PATIENT
  Sex: Male
  Weight: 75 kg

DRUGS (14)
  1. GLIMEPIRIDE [Concomitant]
  2. ETHYL ICOSAPENTATE [Concomitant]
  3. BENDAMUSTINE HCL [Suspect]
     Indication: MANTLE CELL LYMPHOMA
     Route: 042
     Dates: start: 20101227, end: 20110215
  4. SULFAMETHOXAZOLE [Concomitant]
  5. LANSOPRAZOLE [Concomitant]
  6. MECOBALAMIN [Concomitant]
  7. TEMISARTAN [Concomitant]
  8. VALACYCLOVIR HYDROCHLORIDE [Concomitant]
     Dates: start: 20101227
  9. BENDAMUSTINE HCL [Suspect]
     Route: 042
     Dates: start: 20110411
  10. FLUCONAZOLE [Concomitant]
  11. ZOLPIDEM TARTRATE [Concomitant]
  12. PIOGLITAZONE HYDROCHLORIDE [Concomitant]
  13. MAGNESIUM OXIDE [Concomitant]
  14. ASPIRIN [Concomitant]

REACTIONS (7)
  - NEUTROPHIL COUNT DECREASED [None]
  - PLATELET COUNT DECREASED [None]
  - C-REACTIVE PROTEIN INCREASED [None]
  - INFECTION [None]
  - LYMPHOCYTE COUNT DECREASED [None]
  - BLOOD URIC ACID INCREASED [None]
  - WHITE BLOOD CELL COUNT DECREASED [None]
